FAERS Safety Report 16767870 (Version 1)
Quarter: 2019Q3

REPORT INFORMATION
  Report Type: Spontaneous
  Country: AU (occurrence: AU)
  Receive Date: 20190903
  Receipt Date: 20190903
  Transmission Date: 20191005
  Serious: Yes (Death, Hospitalization, Other)
  Sender: FDA-Public Use
  Company Number: AU-SA-2019SA239776

PATIENT
  Age: 70 Year
  Sex: Male

DRUGS (7)
  1. STEGLUJAN [Suspect]
     Active Substance: ERTUGLIFLOZIN PIDOLATE\SITAGLIPTIN PHOSPHATE
     Indication: DIABETES MELLITUS
     Dosage: 1 DF, QD
     Route: 048
     Dates: start: 20190227, end: 20190408
  2. HEPARIN SODIUM. [Suspect]
     Active Substance: HEPARIN SODIUM
     Dosage: UNK, UNK
  3. ESOMEPRAZOLE MAGNESIUM. [Concomitant]
     Active Substance: ESOMEPRAZOLE MAGNESIUM
     Dosage: 20 MG, QD
     Route: 048
  4. STEGLATRO [Suspect]
     Active Substance: ERTUGLIFLOZIN PIDOLATE
     Dosage: UNK, UNK
     Route: 048
  5. METFORMIN HYDROCHLORIDE. [Concomitant]
     Active Substance: METFORMIN HYDROCHLORIDE
     Dosage: UNK, UNK
  6. RAMIPRIL. [Concomitant]
     Active Substance: RAMIPRIL
     Dosage: 5 MG, QD
     Route: 048
  7. CLEXANE [Suspect]
     Active Substance: ENOXAPARIN SODIUM
     Dosage: UNK UNK, UNK

REACTIONS (18)
  - Pancreatitis necrotising [Fatal]
  - Blood albumin decreased [Unknown]
  - Oedema peripheral [Unknown]
  - Protein total decreased [Unknown]
  - Sepsis [Fatal]
  - Heparin-induced thrombocytopenia [Unknown]
  - Blood alkaline phosphatase increased [Unknown]
  - Blood calcium decreased [Unknown]
  - Hyperglycaemia [Unknown]
  - Enterococcal infection [Unknown]
  - Pancreatic duct obstruction [Unknown]
  - Blood creatinine decreased [Unknown]
  - Cardiac arrest [Recovered/Resolved]
  - Wound necrosis [Unknown]
  - Gamma-glutamyltransferase increased [Unknown]
  - Organ failure [Fatal]
  - Cholelithiasis [Unknown]
  - C-reactive protein abnormal [Unknown]

NARRATIVE: CASE EVENT DATE: 20190408
